FAERS Safety Report 4487570-2 (Version None)
Quarter: 2004Q4

REPORT INFORMATION
  Report Type: 
  Country: None (occurrence: None)
  Receive Date: 20041027
  Receipt Date: 20041027
  Transmission Date: 20050328
  Serious: Yes (Hospitalization, Disabling)
  Sender: FDA-Public Use
  Company Number: None

PATIENT
  Age: 57 Year
  Sex: Female
  Weight: 51.2565 kg

DRUGS (1)
  1. AMIKACIN [Suspect]
     Indication: ENDOPHTHALMITIS
     Dosage: INTRA-VITREAL INJECTION [1 DOSE]
     Dates: start: 20040126

REACTIONS (1)
  - BLINDNESS [None]
